FAERS Safety Report 7972054-7 (Version None)
Quarter: 2011Q4

REPORT INFORMATION
  Report Type: 
  Country: None (occurrence: None)
  Receive Date: 20111212
  Receipt Date: 20111201
  Transmission Date: 20120403
  Serious: Yes (Hospitalization, Other)
  Sender: FDA-Public Use
  Company Number: US-BAXTER-2011BH035835

PATIENT
  Sex: Male

DRUGS (2)
  1. DIANEAL [Suspect]
     Indication: PERITONEAL DIALYSIS
     Route: 033
  2. CANCER MEDICATION [Suspect]
     Indication: NEOPLASM MALIGNANT
     Route: 065

REACTIONS (6)
  - GASTRITIS EROSIVE [None]
  - HAEMOGLOBIN DECREASED [None]
  - GASTROINTESTINAL HAEMORRHAGE [None]
  - HEART RATE DECREASED [None]
  - BLOOD CULTURE POSITIVE [None]
  - SYNCOPE [None]
